FAERS Safety Report 25013563 (Version 4)
Quarter: 2025Q2

REPORT INFORMATION
  Report Type: Spontaneous
  Country: US (occurrence: US)
  Receive Date: 20250226
  Receipt Date: 20250516
  Transmission Date: 20250716
  Serious: Yes (Other)
  Sender: AMGEN
  Company Number: US-AMGEN-USASP2025037000

PATIENT
  Age: 35 Year
  Sex: Male
  Weight: 100 kg

DRUGS (71)
  1. TEPEZZA [Suspect]
     Active Substance: TEPROTUMUMAB-TRBW
     Indication: Product used for unknown indication
     Dosage: 1000 MILLIGRAM, Q3WK (FIRST INFUSION)
     Route: 040
     Dates: start: 20220909, end: 20220909
  2. TEPEZZA [Suspect]
     Active Substance: TEPROTUMUMAB-TRBW
     Dosage: 2000 MILLIGRAM, Q3WK (SECOND INFUSION)
     Route: 040
     Dates: start: 20220930, end: 20220930
  3. TEPEZZA [Suspect]
     Active Substance: TEPROTUMUMAB-TRBW
     Dosage: 2000 MILLIGRAM, Q3WK (THIRD INFUSION)
     Route: 040
     Dates: start: 20221021, end: 20221021
  4. TEPEZZA [Suspect]
     Active Substance: TEPROTUMUMAB-TRBW
     Dosage: 2000 MILLIGRAM, Q3WK (FOURTH INFUSION)
     Route: 040
     Dates: start: 20221111, end: 20221111
  5. TEPEZZA [Suspect]
     Active Substance: TEPROTUMUMAB-TRBW
     Dosage: 2000 MILLIGRAM, Q3WK  (FIFTH INFUSION)
     Route: 040
     Dates: start: 20221202, end: 20221202
  6. TEPEZZA [Suspect]
     Active Substance: TEPROTUMUMAB-TRBW
     Dosage: 2000 MILLIGRAM, Q3WK (SIXTH INFUSION)
     Route: 040
     Dates: start: 20221223, end: 20221223
  7. TEPEZZA [Suspect]
     Active Substance: TEPROTUMUMAB-TRBW
     Dosage: 2000 MILLIGRAM, Q3WK (SEVENTH INFUSION)
     Route: 040
     Dates: start: 20230113, end: 20230113
  8. TEPEZZA [Suspect]
     Active Substance: TEPROTUMUMAB-TRBW
     Dosage: 2000 MILLIGRAM, Q3WK (EIGHTH INFUSION)
     Route: 040
     Dates: start: 20230203, end: 20230203
  9. SODIUM CHLORIDE [Concomitant]
     Active Substance: SODIUM CHLORIDE
     Route: 065
  10. CLARITIN [Concomitant]
     Active Substance: LORATADINE
     Dosage: 10 MILLIGRAM, BID
     Route: 048
     Dates: end: 20230328
  11. TEMOVATE [Concomitant]
     Active Substance: CLOBETASOL PROPIONATE
     Dosage: UNK, BID
     Route: 061
     Dates: start: 20200513, end: 20230320
  12. ENTRESTO [Concomitant]
     Active Substance: SACUBITRIL\VALSARTAN
     Dosage: UNK, BID, (49-51 MILLIGRAM)
     Route: 048
     Dates: start: 20230123, end: 20231106
  13. ENTRESTO [Concomitant]
     Active Substance: SACUBITRIL\VALSARTAN
     Dosage: UNK, BID, (49-51 MILLIGRAM)
     Route: 048
     Dates: start: 20231106, end: 20241116
  14. ENTRESTO [Concomitant]
     Active Substance: SACUBITRIL\VALSARTAN
     Dosage: UNK, BID, (49-51 MILLIGRAM)
     Route: 048
     Dates: start: 20241116
  15. FARXIGA [Concomitant]
     Active Substance: DAPAGLIFLOZIN PROPANEDIOL
     Dosage: 10 MILLIGRAM, QD
     Route: 048
     Dates: start: 20230130, end: 20240129
  16. FARXIGA [Concomitant]
     Active Substance: DAPAGLIFLOZIN PROPANEDIOL
     Dosage: 10 MILLIGRAM, QD
     Route: 048
     Dates: start: 20240129
  17. TYLENOL [Concomitant]
     Active Substance: ACETAMINOPHEN
     Indication: Pain
     Dosage: 325 MILLIGRAM, Q6H TAKE 2 TABLETS (650 MG TOTAL)
     Route: 048
     Dates: start: 20230328
  18. TYLENOL [Concomitant]
     Active Substance: ACETAMINOPHEN
     Indication: Pyrexia
  19. MIRALAX [Concomitant]
     Active Substance: POLYETHYLENE GLYCOL 3350
     Indication: Prophylaxis
     Dosage: 17 GRAM, QD
     Route: 048
     Dates: start: 20230328, end: 20240117
  20. LIPITOR [Concomitant]
     Active Substance: ATORVASTATIN CALCIUM
     Dosage: 40 MILLIGRAM, QD
     Route: 048
     Dates: start: 20230427, end: 20240309
  21. LIPITOR [Concomitant]
     Active Substance: ATORVASTATIN CALCIUM
     Dosage: 40 MILLIGRAM, QD
     Route: 048
     Dates: start: 20240309, end: 20250410
  22. TOPROL XL [Concomitant]
     Active Substance: METOPROLOL SUCCINATE
     Dosage: 50 MILLIGRAM, BID, (75 MILLIGRAM )
     Route: 048
     Dates: start: 20221101
  23. TOPROL XL [Concomitant]
     Active Substance: METOPROLOL SUCCINATE
     Dosage: 50 MILLIGRAM, BID, (75 MILLIGRAM )
     Route: 048
     Dates: start: 20230626, end: 20240619
  24. TOPROL XL [Concomitant]
     Active Substance: METOPROLOL SUCCINATE
     Dosage: 50 MILLIGRAM, BID, (75 MILLIGRAM )
     Route: 048
     Dates: start: 20240619
  25. SYNTHROID [Concomitant]
     Active Substance: LEVOTHYROXINE SODIUM
     Dosage: 200 MICROGRAM, QD
     Route: 048
     Dates: start: 20230626, end: 20240822
  26. SYNTHROID [Concomitant]
     Active Substance: LEVOTHYROXINE SODIUM
     Dosage: 200 MICROGRAM, QD
     Route: 048
     Dates: start: 20240822
  27. LEVOTHROID [Concomitant]
     Active Substance: LEVOTHYROXINE SODIUM
     Dosage: 200 MICROGRAM, QD
     Route: 048
     Dates: start: 20230626, end: 20240822
  28. LEVOTHROID [Concomitant]
     Active Substance: LEVOTHYROXINE SODIUM
     Dosage: 200 MICROGRAM, QD
     Route: 048
     Dates: start: 20240822
  29. TRIAMCINOLONE ACETONIDE [Concomitant]
     Active Substance: TRIAMCINOLONE ACETONIDE
     Dosage: UNK, BID, (APPLY THIN LAYER TO AFFECTED AREAS)
     Route: 061
     Dates: start: 20230721
  30. ZITHROMAX [Concomitant]
     Active Substance: AZITHROMYCIN DIHYDRATE
     Dosage: 250 MILLIGRAM, BID
     Dates: start: 20230912, end: 20231018
  31. ZITHROMAX [Concomitant]
     Active Substance: AZITHROMYCIN DIHYDRATE
     Dosage: 250 MILLIGRAM, QD (FOR 4 MORE DAYS)
     Dates: start: 20230912, end: 20231018
  32. INSPRA [Concomitant]
     Active Substance: EPLERENONE
     Dosage: 25 MILLIGRAM, QD
     Route: 048
     Dates: start: 20210622
  33. INSPRA [Concomitant]
     Active Substance: EPLERENONE
     Dosage: 25 MILLIGRAM, QD
     Route: 048
     Dates: start: 20221002, end: 20230119
  34. INSPRA [Concomitant]
     Active Substance: EPLERENONE
     Dosage: 25 MILLIGRAM, QD
     Route: 048
     Dates: start: 20231002, end: 20240822
  35. INSPRA [Concomitant]
     Active Substance: EPLERENONE
     Dosage: 25 MILLIGRAM, QD
     Route: 048
     Dates: start: 20240822
  36. ASPIRIN [Concomitant]
     Active Substance: ASPIRIN
     Dosage: 81 MILLIGRAM, QD
     Route: 048
     Dates: start: 20230403, end: 20231001
  37. ASPIRIN [Concomitant]
     Active Substance: ASPIRIN
     Dosage: 81 MILLIGRAM, QD
     Route: 048
     Dates: start: 20231001, end: 20240822
  38. ASPIRIN [Concomitant]
     Active Substance: ASPIRIN
     Dosage: 81 MILLIGRAM, QD
     Route: 048
     Dates: start: 20240822
  39. WEGOVY [Concomitant]
     Active Substance: SEMAGLUTIDE
     Dosage: UNK UNK, QWK (1 MILLIGRAM/0.5 MILLILITRE)
     Route: 058
     Dates: start: 20230215
  40. WEGOVY [Concomitant]
     Active Substance: SEMAGLUTIDE
     Dosage: UNK UNK, QWK (1 MILLIGRAM/0.5 MILLILITRE)
     Route: 058
     Dates: start: 20230408, end: 20231003
  41. WEGOVY [Concomitant]
     Active Substance: SEMAGLUTIDE
     Dosage: UNK UNK, QWK (1 MILLIGRAM/0.5 MILLILITRE)
     Route: 058
     Dates: start: 20231214, end: 20240117
  42. WEGOVY [Concomitant]
     Active Substance: SEMAGLUTIDE
     Dosage: UNK UNK, QWK (1 MILLIGRAM/0.5 MILLILITRE)
     Route: 058
     Dates: start: 20240117
  43. MINOCIN [Concomitant]
     Active Substance: MINOCYCLINE HYDROCHLORIDE
     Dosage: 100 MILLIGRAM, BID
     Route: 048
     Dates: start: 20230721, end: 20230810
  44. FLONASE [Concomitant]
     Active Substance: FLUTICASONE PROPIONATE
     Route: 045
     Dates: start: 20200601, end: 20230328
  45. FLONASE [Concomitant]
     Active Substance: FLUTICASONE PROPIONATE
     Route: 045
     Dates: start: 20231214
  46. PATADAY [Concomitant]
     Active Substance: OLOPATADINE HYDROCHLORIDE
     Dosage: UNK UNK, QD
     Route: 047
     Dates: start: 20210108, end: 20230328
  47. LASIX [Concomitant]
     Active Substance: FUROSEMIDE
     Dosage: 20 MILLIGRAM, QD
     Route: 048
     Dates: start: 20210706, end: 20230328
  48. HYDROCORTISONE [Concomitant]
     Active Substance: HYDROCORTISONE
     Dosage: UNK, BID
     Route: 061
     Dates: start: 20230120, end: 20230328
  49. HYDROCORTISONE [Concomitant]
     Active Substance: HYDROCORTISONE
     Dosage: UNK, BID
     Route: 061
     Dates: start: 20231121
  50. TAPAZOLE [Concomitant]
     Active Substance: METHIMAZOLE
     Dosage: 5 MILLIGRAM, QD,TAKE 3 TABLETS (15 MG TOTAL)
     Route: 048
     Dates: start: 20220218
  51. TAPAZOLE [Concomitant]
     Active Substance: METHIMAZOLE
     Dosage: 5 MILLIGRAM, QD,TAKE 3 TABLETS (15 MG TOTAL)
     Route: 048
     Dates: start: 20230224, end: 20230328
  52. ZOLOFT [Concomitant]
     Active Substance: SERTRALINE HYDROCHLORIDE
     Route: 065
     Dates: start: 20210721, end: 20221115
  53. K dur [Concomitant]
     Route: 048
     Dates: start: 20220727, end: 20230119
  54. KLOR-CON M10 [Concomitant]
     Active Substance: POTASSIUM CHLORIDE
     Route: 048
  55. LEVAQUIN [Concomitant]
     Active Substance: LEVOFLOXACIN
     Dosage: 500 MILLIGRAM, QD
     Route: 048
     Dates: start: 20210720, end: 20220824
  56. VITAMIN D3 [Concomitant]
     Active Substance: CHOLECALCIFEROL
     Dosage: 25 MICROGRAM, QD
     Route: 048
  57. CIPRO [Concomitant]
     Active Substance: CIPROFLOXACIN HYDROCHLORIDE
     Dosage: 500 MILLIGRAM, BID
     Route: 048
     Dates: start: 20240209, end: 20240214
  58. Romycin [Concomitant]
     Dosage: UNK UNK, TID (PLACE 0.5 INCHES INTO EACH EYE)
     Route: 047
     Dates: start: 20240209, end: 20240216
  59. MARCAINE [Concomitant]
     Active Substance: BUPIVACAINE HYDROCHLORIDE
  60. XYLOCAINE WITH EPINEPHRINE [Concomitant]
     Active Substance: EPINEPHRINE BITARTRATE\LIDOCAINE HYDROCHLORIDE
  61. ALCAINE [Concomitant]
     Active Substance: PROPARACAINE HYDROCHLORIDE
     Route: 047
  62. ERYTHROMYCIN [Concomitant]
     Active Substance: ERYTHROMYCIN
     Route: 047
  63. BSS [Concomitant]
     Active Substance: CALCIUM CHLORIDE\MAGNESIUM CHLORIDE\POTASSIUM CHLORIDE\SODIUM ACETATE\SODIUM CHLORIDE\SODIUM CITRATE
     Route: 065
  64. SODIUM CHLORIDE [Concomitant]
     Active Substance: SODIUM CHLORIDE
     Route: 065
  65. CLEOCIN [Concomitant]
     Active Substance: CLINDAMYCIN PHOSPHATE
     Route: 065
  66. ULTIVA [Concomitant]
     Active Substance: REMIFENTANIL HYDROCHLORIDE
     Route: 065
  67. PRECEDEX [Concomitant]
     Active Substance: DEXMEDETOMIDINE HYDROCHLORIDE
     Route: 065
  68. ZEPBOUND [Concomitant]
     Active Substance: TIRZEPATIDE
     Route: 058
     Dates: start: 20240508
  69. ZEPBOUND [Concomitant]
     Active Substance: TIRZEPATIDE
     Route: 058
     Dates: start: 20240508, end: 20250129
  70. SULCONAZOLE [Concomitant]
     Active Substance: SULCONAZOLE
     Dosage: UNK UNK, BID
     Route: 061
     Dates: start: 20250130
  71. WIXELA INHUB [Concomitant]
     Active Substance: FLUTICASONE PROPIONATE\SALMETEROL XINAFOATE
     Dosage: UNK UNK, BID, (TAKE 1 PUFF)
     Route: 048
     Dates: start: 20241014

REACTIONS (32)
  - Deafness neurosensory [Not Recovered/Not Resolved]
  - Rectal haemorrhage [Unknown]
  - Anxiety [Unknown]
  - Emotional distress [Unknown]
  - Pain [Unknown]
  - Impaired quality of life [Unknown]
  - Product use complaint [Unknown]
  - Animal bite [Unknown]
  - Influenza like illness [Unknown]
  - Axillary pain [Unknown]
  - Myalgia [Unknown]
  - Paraesthesia [Unknown]
  - Hypoaesthesia [Unknown]
  - Dyspnoea [Unknown]
  - Abdominal pain upper [Unknown]
  - Rash pruritic [Unknown]
  - Hair growth rate abnormal [Unknown]
  - Cough [Unknown]
  - Lower respiratory tract congestion [Unknown]
  - Abdominal discomfort [Unknown]
  - Nasal congestion [Unknown]
  - Heart rate decreased [Unknown]
  - Thyroid disorder [Unknown]
  - Chills [Unknown]
  - Pyrexia [Unknown]
  - Ear discomfort [Unknown]
  - Tinnitus [Not Recovered/Not Resolved]
  - Diarrhoea [Unknown]
  - Headache [Unknown]
  - Alopecia [Unknown]
  - Onychoclasis [Unknown]
  - Nail disorder [Unknown]

NARRATIVE: CASE EVENT DATE: 20231129
